FAERS Safety Report 4581194-4 (Version None)
Quarter: 2005Q1

REPORT INFORMATION
  Report Type: 
  Country: None (occurrence: None)
  Receive Date: 20050214
  Receipt Date: 20040830
  Transmission Date: 20050727
  Serious: No
  Sender: FDA-Public Use
  Company Number: US-GLAXOSMITHKLINE-A0523777A

PATIENT
  Age: 36 Year
  Sex: Female
  Weight: 54.5 kg

DRUGS (6)
  1. LAMICTAL [Suspect]
     Route: 048
     Dates: start: 20040524, end: 20040910
  2. ZOLOFT [Concomitant]
     Indication: PANIC REACTION
     Dosage: 85MG PER DAY
     Route: 048
  3. AMBIEN [Concomitant]
     Indication: SLEEP DISORDER
     Route: 048
  4. LORAZEPAM [Concomitant]
     Indication: ANXIETY
     Dosage: .5MG AS REQUIRED
     Route: 048
  5. XANAX [Concomitant]
     Indication: ANXIETY
     Dosage: .5MG TWICE PER DAY
     Route: 048
  6. NARCOTIC [Concomitant]
     Route: 065

REACTIONS (1)
  - PYREXIA [None]
